FAERS Safety Report 13746873 (Version 1)
Quarter: 2017Q3

REPORT INFORMATION
  Report Type: Spontaneous
  Country: US (occurrence: US)
  Receive Date: 20170712
  Receipt Date: 20170712
  Transmission Date: 20171127
  Serious: Yes (Death, Hospitalization, Disabling, Other)
  Sender: FDA-Public Use
  Company Number: US-009507513-1206USA00562

PATIENT
  Sex: Female

DRUGS (1)
  1. FOSAMAX [Suspect]
     Active Substance: ALENDRONATE SODIUM
     Indication: OSTEOPOROSIS
     Dosage: 70 MG, UNK
     Route: 048
     Dates: start: 1995, end: 201002

REACTIONS (17)
  - Macular degeneration [Unknown]
  - Haemorrhagic anaemia [Unknown]
  - Medical device removal [Unknown]
  - Hyperlipidaemia [Unknown]
  - Femur fracture [Unknown]
  - Spinal column stenosis [Unknown]
  - Deep vein thrombosis [Unknown]
  - Appendicectomy [Unknown]
  - Fracture nonunion [Unknown]
  - Fall [Unknown]
  - Hypothyroidism [Unknown]
  - Osteoarthritis [Unknown]
  - Death [Fatal]
  - Hypokalaemia [Unknown]
  - Coronary artery disease [Recovered/Resolved]
  - Hypertension [Unknown]
  - Cataract [Unknown]

NARRATIVE: CASE EVENT DATE: 1998
